FAERS Safety Report 20896454 (Version 1)
Quarter: 2022Q2

REPORT INFORMATION
  Report Type: Spontaneous
  Country: US (occurrence: None)
  Receive Date: 20220530
  Receipt Date: 20220530
  Transmission Date: 20220721
  Serious: Yes (Hospitalization)
  Sender: FDA-Public Use
  Company Number: None

PATIENT
  Age: 54 Year
  Sex: Female
  Weight: 56.25 kg

DRUGS (5)
  1. .DELTA.8-TETRAHYDROCANNABINOL [Suspect]
     Active Substance: .DELTA.8-TETRAHYDROCANNABINOL
     Indication: Dysmenorrhoea
     Dosage: OTHER QUANTITY : 1 GUMMY;?OTHER FREQUENCY : ONCE;?
     Route: 048
     Dates: start: 20220529, end: 20220529
  2. LEXAPRO [Concomitant]
     Active Substance: ESCITALOPRAM OXALATE
  3. Moderne Axix Phytogolds [Concomitant]
  4. Moderne Axis Trebiotic [Concomitant]
  5. Noonbrew Tea [Concomitant]

REACTIONS (5)
  - Hallucination [None]
  - Tremor [None]
  - Nausea [None]
  - Movement disorder [None]
  - Fatigue [None]

NARRATIVE: CASE EVENT DATE: 20220529
